FAERS Safety Report 19204828 (Version 1)
Quarter: 2021Q2

REPORT INFORMATION
  Report Type: Spontaneous
  Country: US (occurrence: US)
  Receive Date: 20210430
  Receipt Date: 20210430
  Transmission Date: 20210717
  Serious: No
  Sender: FDA-Public Use
  Company Number: None

PATIENT
  Age: 73 Year
  Sex: Female
  Weight: 95 kg

DRUGS (8)
  1. REPATHA [Suspect]
     Active Substance: EVOLOCUMAB
     Indication: HYPERLIPIDAEMIA
     Dosage: ?          OTHER FREQUENCY:EVERY 2 WEEKS;?
     Route: 058
     Dates: start: 20210315, end: 20210428
  2. BACLOFEN 10MG [Concomitant]
     Active Substance: BACLOFEN
  3. NITROGLYCERIN SL 0.4MG [Concomitant]
  4. ALPRAZOLAM 0.25MG [Concomitant]
     Active Substance: ALPRAZOLAM
  5. TRAMADOL 50MG [Concomitant]
     Active Substance: TRAMADOL
  6. ASA 81MG [Concomitant]
     Active Substance: ASPIRIN
  7. BRILINTA [Concomitant]
     Active Substance: TICAGRELOR
  8. FUROSEMIDE 40MG [Concomitant]
     Active Substance: FUROSEMIDE

REACTIONS (8)
  - Sinus disorder [None]
  - Dysphagia [None]
  - Peripheral swelling [None]
  - Erythema [None]
  - Eye irritation [None]
  - Lacrimation increased [None]
  - Pain in extremity [None]
  - Angioedema [None]

NARRATIVE: CASE EVENT DATE: 20210428
